FAERS Safety Report 4875798-9 (Version None)
Quarter: 2006Q1

REPORT INFORMATION
  Report Type: 
  Country: None (occurrence: None)
  Receive Date: 20060106
  Receipt Date: 20051227
  Transmission Date: 20060701
  Serious: Yes (Hospitalization)
  Sender: FDA-Public Use
  Company Number: 2005BI021656

PATIENT
  Age: 45 Year
  Sex: Female

DRUGS (7)
  1. AVONEX [Suspect]
     Indication: MULTIPLE SCLEROSIS
     Dosage: 30 UG QW IM
     Route: 030
     Dates: start: 20030329, end: 20030819
  2. AVONEX [Suspect]
     Indication: MULTIPLE SCLEROSIS
     Dosage: 30 UG QW IM
     Route: 030
     Dates: start: 20030826, end: 20050904
  3. OXYCODONE [Concomitant]
  4. DURAGESIC-100 [Concomitant]
  5. VALIUM [Concomitant]
  6. PRILOSEC [Concomitant]
  7. PAXIL [Concomitant]

REACTIONS (2)
  - CHOLECYSTITIS INFECTIVE [None]
  - DEPRESSION [None]
